FAERS Safety Report 8607353 (Version 3)
Quarter: 2013Q4

REPORT INFORMATION
  Report Type: Spontaneous
  Country: US (occurrence: US)
  Receive Date: 20120611
  Receipt Date: 20131204
  Transmission Date: 20140711
  Serious: No
  Sender: FDA-Public Use
  Company Number: US-ASTRAZENECA-2012SE34983

PATIENT
  Age: 64 Year
  Sex: Male

DRUGS (13)
  1. NEXIUM [Suspect]
     Route: 048
     Dates: start: 20080125
  2. NEXIUM [Suspect]
     Route: 048
     Dates: start: 20080125, end: 20111118
  3. NEXIUM [Suspect]
     Route: 048
     Dates: start: 20080125
  4. PANTOPRAZOLE [Concomitant]
     Dates: start: 20120313
  5. FLUTICASONE [Concomitant]
     Dates: start: 20120123
  6. SINGULAIR [Concomitant]
     Route: 048
     Dates: start: 20071101
  7. ACIPHEX [Concomitant]
     Route: 048
     Dates: start: 20070428
  8. MORPHINE SULFATE [Concomitant]
     Route: 048
     Dates: start: 20090324
  9. CYCLOBENZAPRINE [Concomitant]
     Route: 048
     Dates: start: 20090319
  10. ALPRAZOLAM [Concomitant]
     Dosage: FOUR HOURS BEFORE SURGERY
     Route: 048
     Dates: start: 20100611
  11. PREDNISONE [Concomitant]
     Route: 048
     Dates: start: 20090814
  12. VITAMINE D [Concomitant]
     Route: 048
     Dates: start: 20110520
  13. FERROUS SULFATE [Concomitant]
     Route: 048
     Dates: start: 20110520

REACTIONS (9)
  - Osteoporosis [Unknown]
  - Multiple fractures [Unknown]
  - Bone pain [Unknown]
  - Arthritis [Unknown]
  - Rheumatoid arthritis [Unknown]
  - Cor pulmonale [Unknown]
  - Aortic disorder [Unknown]
  - Cataract [Unknown]
  - Angina pectoris [Unknown]
